FAERS Safety Report 6066575-4 (Version None)
Quarter: 2009Q1

REPORT INFORMATION
  Report Type: 
  Country: None (occurrence: None)
  Receive Date: 20090205
  Receipt Date: 20090126
  Transmission Date: 20090719
  Serious: Yes (Hospitalization)
  Sender: FDA-Public Use
  Company Number: A0766158A

PATIENT
  Age: 52 Year
  Sex: Male
  Weight: 75.3 kg

DRUGS (4)
  1. VALTREX [Suspect]
     Dates: start: 20090101, end: 20090101
  2. CHEMOTHERAPY [Suspect]
     Dosage: 80MG TWICE PER DAY
     Route: 048
     Dates: start: 20081204, end: 20090106
  3. CHEMOTHERAPY [Suspect]
  4. ALENDRONATE SODIUM [Concomitant]

REACTIONS (9)
  - ANAEMIA [None]
  - ASTHENIA [None]
  - DIARRHOEA [None]
  - DIARRHOEA HAEMORRHAGIC [None]
  - DYSPNOEA EXERTIONAL [None]
  - ERYTHEMA [None]
  - RASH [None]
  - SCAB [None]
  - SPLENOMEGALY [None]
